FAERS Safety Report 4326383-9 (Version None)
Quarter: 2004Q1

REPORT INFORMATION
  Report Type: 
  Country: None (occurrence: None)
  Receive Date: 20040325
  Receipt Date: 20030917
  Transmission Date: 20041129
  Serious: No
  Sender: FDA-Public Use
  Company Number: US048047

PATIENT
  Age: 66 Year
  Sex: Female
  Weight: 79.9 kg

DRUGS (8)
  1. NEULASTA [Suspect]
     Indication: CHEMOTHERAPY
     Dosage: 6 MG, AFTER CHEMO, SC
     Route: 058
     Dates: start: 20030723, end: 20030723
  2. NEULASTA [Suspect]
     Dosage: 6 MG ONE TIME DOSE SC
     Route: 058
     Dates: start: 20030911, end: 20030911
  3. CARBOPLATIN [Concomitant]
  4. GEMCITABINE HCL [Concomitant]
  5. EPIRUBICIN [Concomitant]
  6. GRANISETRON HCL [Concomitant]
  7. ONDANSETRON HCL [Concomitant]
  8. DEXAMETHASONE [Concomitant]

REACTIONS (2)
  - DRUG INEFFECTIVE [None]
  - NEUTROPENIA [None]
